FAERS Safety Report 12587817 (Version 2)
Quarter: 2016Q4

REPORT INFORMATION
  Report Type: Report from Study
  Country: US (occurrence: US)
  Receive Date: 20160725
  Receipt Date: 20161004
  Transmission Date: 20170207
  Serious: Yes (Other)
  Sender: FDA-Public Use
  Company Number: US-009507513-1607USA009108

PATIENT
  Sex: Female

DRUGS (1)
  1. INTRON A [Suspect]
     Active Substance: INTERFERON ALFA-2B
     Dosage: UNK

REACTIONS (29)
  - Back pain [Unknown]
  - Fatigue [Unknown]
  - Insomnia [Unknown]
  - Cough [Unknown]
  - Nausea [Unknown]
  - Diarrhoea [Unknown]
  - Wound [Unknown]
  - Mouth ulceration [Unknown]
  - Epistaxis [Unknown]
  - Dyspnoea [Unknown]
  - Vomiting [Unknown]
  - Pruritus [Unknown]
  - Depression [Unknown]
  - Seizure [Unknown]
  - Arthralgia [Unknown]
  - Myalgia [Unknown]
  - Skin ulcer [Unknown]
  - Constipation [Unknown]
  - Palpitations [Unknown]
  - Dizziness [Unknown]
  - Wheezing [Unknown]
  - Dysuria [Unknown]
  - Gingival bleeding [Unknown]
  - Dysphagia [Unknown]
  - Amnesia [Unknown]
  - Mood swings [Unknown]
  - Sensory loss [Unknown]
  - Headache [Unknown]
  - Anxiety [Unknown]
